FAERS Safety Report 7979603-3 (Version None)
Quarter: 2011Q4

REPORT INFORMATION
  Report Type: 
  Country: None (occurrence: None)
  Receive Date: 20111214
  Receipt Date: 20111207
  Transmission Date: 20120403
  Serious: Yes (Hospitalization, Other)
  Sender: FDA-Public Use
  Company Number: US-ABBOTT-11P-163-0881254-00

PATIENT
  Sex: Female
  Weight: 68.1 kg

DRUGS (6)
  1. PREDNISONE TAB [Concomitant]
     Indication: IRITIS
     Dosage: EYE DROPS
     Route: 047
  2. FOLIC ACID [Concomitant]
     Indication: PRODUCT USED FOR UNKNOWN INDICATION
  3. METHOTREXATE [Concomitant]
     Indication: PRODUCT USED FOR UNKNOWN INDICATION
     Dosage: FOUR TABS ON TUE AND FOUR TABS ON FRI
  4. RESTASIS [Concomitant]
     Indication: DRY EYE
     Dosage: EYE DROPS
     Route: 047
  5. MULTI-VITAMINS [Concomitant]
     Indication: VITAMIN SUPPLEMENTATION
  6. HUMIRA [Suspect]
     Indication: RHEUMATOID ARTHRITIS
     Route: 058
     Dates: start: 20090101, end: 20110501

REACTIONS (4)
  - COUGH [None]
  - BACK PAIN [None]
  - BREAST CANCER [None]
  - PNEUMONIA [None]
